FAERS Safety Report 16285564 (Version 1)
Quarter: 2019Q2

REPORT INFORMATION
  Report Type: Spontaneous
  Country: US (occurrence: US)
  Receive Date: 20190506
  Receipt Date: 20190506
  Transmission Date: 20190711
  Serious: No
  Sender: FDA-Public Use
  Company Number: None

PATIENT

DRUGS (2)
  1. PROLIA [Suspect]
     Active Substance: DENOSUMAB
  2. UDENYCA [Suspect]
     Active Substance: PEGFILGRASTIM-CBQV

REACTIONS (2)
  - Product storage error [None]
  - Product appearance confusion [None]

NARRATIVE: CASE EVENT DATE: 20190503
